FAERS Safety Report 21047547 (Version 1)
Quarter: 2022Q3

REPORT INFORMATION
  Report Type: Spontaneous
  Country: US (occurrence: None)
  Receive Date: 20220705
  Receipt Date: 20220705
  Transmission Date: 20221027
  Serious: No
  Sender: FDA-Public Use
  Company Number: None

PATIENT
  Sex: Male

DRUGS (3)
  1. AMBRISENTAN [Suspect]
     Active Substance: AMBRISENTAN
     Indication: Pulmonary arterial hypertension
     Dosage: FREQUENCY : DAILY;?
     Route: 048
  2. TADALAFIL [Suspect]
     Active Substance: TADALAFIL
  3. ALYQ [Concomitant]
     Active Substance: TADALAFIL

REACTIONS (5)
  - Therapeutic product effect incomplete [None]
  - Fluid retention [None]
  - Non-24-hour sleep-wake disorder [None]
  - Rectal haemorrhage [None]
  - Vomiting [None]
